FAERS Safety Report 7585271-5 (Version None)
Quarter: 2011Q2

REPORT INFORMATION
  Report Type: 
  Country: None (occurrence: None)
  Receive Date: 20110629
  Receipt Date: 20110629
  Transmission Date: 20111010
  Serious: Yes (Hospitalization)
  Sender: FDA-Public Use
  Company Number: None

PATIENT
  Age: 26 Year
  Sex: Male

DRUGS (2)
  1. INVEGA SUSTENNA [Suspect]
  2. DEPAKOTE ER [Concomitant]

REACTIONS (1)
  - PANCREATITIS [None]
